FAERS Safety Report 6210611-9 (Version None)
Quarter: 2009Q2

REPORT INFORMATION
  Report Type: 
  Country: None (occurrence: None)
  Receive Date: 20090527
  Receipt Date: 20090515
  Transmission Date: 20091009
  Serious: Yes (Hospitalization)
  Sender: FDA-Public Use
  Company Number: 235500K09USA

PATIENT
  Age: 65 Year
  Sex: Female

DRUGS (9)
  1. REBIF [Suspect]
     Indication: MULTIPLE SCLEROSIS
     Dosage: 44 MCG, 3 IN 1 WEEKS, SUBCUTANEOUS
     Route: 058
     Dates: start: 20061110
  2. IBUPROFEN [Concomitant]
  3. NORVASC [Concomitant]
  4. DYAZIDE [Concomitant]
  5. MIACALCIN [Concomitant]
  6. ELAVIL [Concomitant]
  7. PAXIL [Concomitant]
  8. ASPIRIN [Concomitant]
  9. LOVASTATIN [Concomitant]

REACTIONS (1)
  - COLITIS ISCHAEMIC [None]
